FAERS Safety Report 4362668-8 (Version None)
Quarter: 2004Q2

REPORT INFORMATION
  Report Type: 
  Country: None (occurrence: None)
  Receive Date: 20040517
  Receipt Date: 20040510
  Transmission Date: 20050107
  Serious: Yes (Hospitalization)
  Sender: FDA-Public Use
  Company Number: 2004212927CA

PATIENT
  Age: 69 Year
  Sex: Female

DRUGS (4)
  1. CLINDAMYCIN HCL [Suspect]
     Indication: TOOTH ABSCESS
     Dosage: 600 MG, DAILY, ORAL; 300 MG, DAILY, ORAL
     Route: 048
     Dates: start: 20040507, end: 20040507
  2. CLINDAMYCIN HCL [Suspect]
     Indication: TOOTH ABSCESS
     Dosage: 600 MG, DAILY, ORAL; 300 MG, DAILY, ORAL
     Route: 048
     Dates: start: 20040508
  3. OMEPRAZOLE MAGNESIUM (OMEPRAZOLE MAGNESIUM) [Concomitant]
  4. ACTONEL (MEBANAZINE) [Concomitant]

REACTIONS (4)
  - AURA [None]
  - LOSS OF CONSCIOUSNESS [None]
  - MIGRAINE [None]
  - VOMITING [None]
